FAERS Safety Report 25586950 (Version 1)
Quarter: 2025Q3

REPORT INFORMATION
  Report Type: Spontaneous
  Country: US (occurrence: US)
  Receive Date: 20250721
  Receipt Date: 20250721
  Transmission Date: 20251021
  Serious: No
  Sender: Phathom Pharmaceuticals
  Company Number: US-PHATHOM PHARMACEUTICALS INC.-2025PHT00846

PATIENT
  Sex: Female

DRUGS (6)
  1. VOQUEZNA [Suspect]
     Active Substance: VONOPRAZAN FUMARATE
     Route: 048
  2. PROLIA [Concomitant]
     Active Substance: DENOSUMAB
  3. CLOBETASOL [Concomitant]
     Active Substance: CLOBETASOL
  4. IPRATROPIUM BROMIDE [Concomitant]
     Active Substance: IPRATROPIUM BROMIDE
  5. ASPIRIN [Concomitant]
     Active Substance: ASPIRIN
  6. ESTRADIOL [Concomitant]
     Active Substance: ESTRADIOL

REACTIONS (2)
  - Emotional distress [Unknown]
  - Dizziness [Unknown]
